FAERS Safety Report 17119171 (Version 2)
Quarter: 2020Q1

REPORT INFORMATION
  Report Type: Report from Study
  Country: US (occurrence: US)
  Receive Date: 20191206
  Receipt Date: 20200204
  Transmission Date: 20200409
  Serious: Yes (Hospitalization)
  Sender: FDA-Public Use
  Company Number: US-ROCHE-2486010

PATIENT
  Age: 77 Year
  Sex: Male
  Weight: 107 kg

DRUGS (4)
  1. IBRUTINIB [Suspect]
     Active Substance: IBRUTINIB
     Indication: CHRONIC LYMPHOCYTIC LEUKAEMIA
     Dosage: FOR 15 CYCLES?DATE OF LAST DOSE OF ADMINISTRATION PRIOR TO SAE: 27/OCT/2019
     Route: 048
     Dates: start: 20191021, end: 20191027
  2. OBINUTUZUMAB. [Suspect]
     Active Substance: OBINUTUZUMAB
     Dosage: ON C1D8 AND C1D15
     Route: 042
  3. OBINUTUZUMAB. [Suspect]
     Active Substance: OBINUTUZUMAB
     Indication: CHRONIC LYMPHOCYTIC LEUKAEMIA
     Dosage: ON C1D1?DATE OF LAST DOSE OF ADMINISTRATION PRIOR TO SAE: 22/OCT/2019
     Route: 042
     Dates: start: 20191021, end: 20191022
  4. OBINUTUZUMAB. [Suspect]
     Active Substance: OBINUTUZUMAB
     Dosage: ON C1D2
     Route: 042

REACTIONS (3)
  - Hyperglycaemia [Recovered/Resolved]
  - Myocardial infarction [Not Recovered/Not Resolved]
  - Troponin T increased [Not Recovered/Not Resolved]

NARRATIVE: CASE EVENT DATE: 20191027
